FAERS Safety Report 23787603 (Version 3)
Quarter: 2024Q3

REPORT INFORMATION
  Report Type: Spontaneous
  Country: US (occurrence: US)
  Receive Date: 20240426
  Receipt Date: 20240917
  Transmission Date: 20241017
  Serious: No
  Sender: GLAXOSMITHKLINE
  Company Number: US-GSK-US2024AMR050808

PATIENT
  Sex: Female

DRUGS (1)
  1. BENLYSTA [Suspect]
     Active Substance: BELIMUMAB
     Indication: Systemic lupus erythematosus
     Dosage: 200 MG/ML, WE, 4PAK
     Route: 058

REACTIONS (6)
  - Nausea [Unknown]
  - Pain in extremity [Unknown]
  - Migraine [Unknown]
  - Somnolence [Unknown]
  - Urinary tract infection [Unknown]
  - Adverse drug reaction [Unknown]
